FAERS Safety Report 6248066-0 (Version None)
Quarter: 2009Q2

REPORT INFORMATION
  Report Type: 
  Country: None (occurrence: None)
  Receive Date: 20090628
  Receipt Date: 20090624
  Transmission Date: 20091009
  Serious: Yes (Other)
  Sender: FDA-Public Use
  Company Number: US-ALLERGAN-0905101US

PATIENT
  Age: 58 Year
  Sex: Female
  Weight: 76.2 kg

DRUGS (10)
  1. ALPHAGAN [Suspect]
     Indication: INTRAOCULAR PRESSURE INCREASED
     Route: 047
     Dates: start: 20040615
  2. ALPHAGAN [Suspect]
     Dosage: UNK, TID
     Route: 047
     Dates: start: 20060213
  3. ALPHAGAN [Suspect]
     Dosage: UNK, UNK
     Route: 047
     Dates: start: 20090223
  4. TRUSOPT [Suspect]
     Indication: INTRAOCULAR PRESSURE INCREASED
     Route: 047
     Dates: start: 20040621
  5. TRUSOPT [Suspect]
     Dosage: UNK, TID
     Route: 047
     Dates: start: 20060213
  6. TRUSOPT [Suspect]
     Route: 047
     Dates: start: 20090223
  7. BETOPTIC [Suspect]
     Indication: INTRAOCULAR PRESSURE INCREASED
     Route: 047
     Dates: start: 20040615
  8. XALATAN [Suspect]
     Indication: INTRAOCULAR PRESSURE INCREASED
     Dosage: 1 GTT, QHS
     Route: 047
     Dates: start: 20040521, end: 20040701
  9. XALATAN [Suspect]
     Route: 047
     Dates: start: 20051001
  10. XALATAN [Suspect]
     Dates: start: 20080701, end: 20090319

REACTIONS (5)
  - ABNORMAL DREAMS [None]
  - COUGH [None]
  - DYSPNOEA [None]
  - NASAL CONGESTION [None]
  - TINNITUS [None]
